FAERS Safety Report 7944843-6 (Version None)
Quarter: 2011Q4

REPORT INFORMATION
  Report Type: 
  Country: None (occurrence: None)
  Receive Date: 20111129
  Receipt Date: 20111122
  Transmission Date: 20120403
  Serious: Yes (Hospitalization)
  Sender: FDA-Public Use
  Company Number: FR-JNJFOC-20111111169

PATIENT
  Sex: Male

DRUGS (5)
  1. PROZAC [Suspect]
     Indication: SCHIZOPHRENIA
     Dosage: SINCE SEVERAL YEARS
     Route: 048
  2. TERCIAN [Suspect]
     Indication: SCHIZOPHRENIA
     Dosage: SINCE SEVERAL YEARS
     Route: 048
  3. RISPERDAL [Suspect]
     Indication: SCHIZOPHRENIA
     Dosage: SINCE SEVERAL YEARS
     Route: 048
  4. TRANXENE [Suspect]
     Indication: SCHIZOPHRENIA
     Dosage: SINCE SEVERAL YEARS
     Route: 048
  5. LEPTICUR [Suspect]
     Indication: SCHIZOPHRENIA
     Dosage: SINCE SEVERAL YEARS
     Route: 048

REACTIONS (1)
  - ISCHAEMIC STROKE [None]
